FAERS Safety Report 6448377-X (Version None)
Quarter: 2009Q4

REPORT INFORMATION
  Report Type: 
  Country: None (occurrence: None)
  Receive Date: 20091120
  Receipt Date: 20091109
  Transmission Date: 20100525
  Serious: Yes (Hospitalization)
  Sender: FDA-Public Use
  Company Number: PHEH2009US15385

PATIENT
  Sex: Male

DRUGS (1)
  1. EXJADE [Suspect]
     Indication: LYMPHATIC DISORDER
     Dosage: 4000 MG DAILY
     Route: 048
     Dates: start: 20080512

REACTIONS (1)
  - BLOOD GLUCOSE DECREASED [None]
